FAERS Safety Report 19386342 (Version 4)
Quarter: 2022Q1

REPORT INFORMATION
  Report Type: Report from Study
  Country: BR (occurrence: BR)
  Receive Date: 20210608
  Receipt Date: 20220118
  Transmission Date: 20220423
  Serious: Yes (Other)
  Sender: FDA-Public Use
  Company Number: BR-NOVARTISPH-NVSC2020BR084873

PATIENT
  Age: 34 Year
  Sex: Female
  Weight: 69 kg

DRUGS (20)
  1. KISQALI [Suspect]
     Active Substance: RIBOCICLIB
     Indication: Breast cancer metastatic
     Dosage: UNK
     Route: 065
     Dates: start: 20190731
  2. KISQALI [Suspect]
     Active Substance: RIBOCICLIB
     Dosage: 3 DF, CYCLIC (HAD 1 CYCLE WITH 3 TABLETS OF 200MG (600MG))
     Route: 065
  3. KISQALI [Suspect]
     Active Substance: RIBOCICLIB
     Dosage: 2 DF (TWO TABLETS OF 200MG)
     Route: 048
     Dates: start: 20190731
  4. KISQALI [Suspect]
     Active Substance: RIBOCICLIB
     Dosage: 2 DF, QD
     Route: 065
     Dates: start: 20190731
  5. KISQALI [Suspect]
     Active Substance: RIBOCICLIB
     Dosage: 2 DF, QD
     Route: 065
     Dates: start: 20190731
  6. KISQALI [Suspect]
     Active Substance: RIBOCICLIB
     Dosage: 2 DF (TWO TABLETS OF 200MG)
     Route: 048
     Dates: start: 20190909
  7. KISQALI [Suspect]
     Active Substance: RIBOCICLIB
     Dosage: 2 DF, QD
     Route: 065
  8. KISQALI [Suspect]
     Active Substance: RIBOCICLIB
     Dosage: 3 DOSAGE FORM, QD
     Route: 065
     Dates: start: 201907
  9. KISQALI [Suspect]
     Active Substance: RIBOCICLIB
     Dosage: UNK
     Route: 065
     Dates: start: 20190731
  10. FEMARA [Suspect]
     Active Substance: LETROZOLE
     Indication: Breast cancer metastatic
     Dosage: UNK
     Route: 065
     Dates: start: 20190731
  11. FEMARA [Suspect]
     Active Substance: LETROZOLE
     Indication: Hormone therapy
     Dosage: UNK
     Route: 065
     Dates: start: 20190731
  12. FEMARA [Suspect]
     Active Substance: LETROZOLE
     Dosage: 2.5 MG
     Route: 048
  13. FEMARA [Suspect]
     Active Substance: LETROZOLE
     Dosage: UNK
     Route: 065
     Dates: start: 20190731
  14. ZOMETA [Suspect]
     Active Substance: ZOLEDRONIC ACID
     Indication: Product used for unknown indication
     Dosage: UNK, Q3MO
     Route: 065
     Dates: start: 202105
  15. GOSERELIN [Suspect]
     Active Substance: GOSERELIN
     Indication: Product used for unknown indication
     Dosage: UNK
     Route: 065
     Dates: start: 20190731
  16. DENOSUMAB [Concomitant]
     Active Substance: DENOSUMAB
     Indication: Bone disorder
     Dosage: 120 MG EVERY 28 DAYS
     Route: 058
     Dates: start: 20190731
  17. DENOSUMAB [Concomitant]
     Active Substance: DENOSUMAB
     Dosage: UNK, QMO
     Route: 065
  18. ZOLADEX [Concomitant]
     Active Substance: GOSERELIN ACETATE
     Indication: Hormone therapy
     Dosage: 3.6 MG, QMO
     Route: 058
     Dates: start: 20190731
  19. ZOLADEX [Concomitant]
     Active Substance: GOSERELIN ACETATE
     Indication: Menopause
     Dosage: UNK, QMO
     Route: 065
  20. ZOLADEX [Concomitant]
     Active Substance: GOSERELIN ACETATE
     Dosage: UNK
     Route: 065
     Dates: start: 201907, end: 202101

REACTIONS (18)
  - Neutropenia [Unknown]
  - Metastasis [Unknown]
  - White blood cell count decreased [Unknown]
  - Nausea [Recovering/Resolving]
  - Injury [Unknown]
  - Decreased immune responsiveness [Unknown]
  - Pain [Not Recovered/Not Resolved]
  - Anxiety [Recovering/Resolving]
  - Pain in extremity [Recovering/Resolving]
  - Arthralgia [Not Recovered/Not Resolved]
  - Nerve injury [Unknown]
  - Carpal tunnel syndrome [Not Recovered/Not Resolved]
  - Memory impairment [Not Recovered/Not Resolved]
  - Sensitive skin [Not Recovered/Not Resolved]
  - Premature menopause [Unknown]
  - Dry skin [Not Recovered/Not Resolved]
  - Therapy partial responder [Unknown]
  - General physical condition abnormal [Unknown]

NARRATIVE: CASE EVENT DATE: 20190731
